FAERS Safety Report 16229059 (Version 1)
Quarter: 2019Q2

REPORT INFORMATION
  Report Type: Spontaneous
  Country: CH (occurrence: CH)
  Receive Date: 20190423
  Receipt Date: 20190423
  Transmission Date: 20190711
  Serious: Yes (Other)
  Sender: FDA-Public Use
  Company Number: CH-PFIZER INC-2019165841

PATIENT
  Age: 18 Year
  Sex: Female

DRUGS (2)
  1. LISENIA [Suspect]
     Active Substance: ETHINYL ESTRADIOL\LEVONORGESTREL
     Indication: HORMONAL CONTRACEPTION
     Dosage: ETHINYL ESTRADIOL 0.02 MG + LEVONORGESTREL 0.10 MG
  2. ZOLOFT [Suspect]
     Active Substance: SERTRALINE HYDROCHLORIDE
     Dosage: 25 MG, 1X/DAY
     Route: 048
     Dates: start: 20190321, end: 20190404

REACTIONS (3)
  - Muscle tightness [Unknown]
  - Metrorrhagia [Recovered/Resolved]
  - Yawning [Unknown]

NARRATIVE: CASE EVENT DATE: 20190328
